FAERS Safety Report 6897965-5 (Version None)
Quarter: 2010Q3

REPORT INFORMATION
  Report Type: 
  Country: None (occurrence: None)
  Receive Date: 20100802
  Receipt Date: 20070808
  Transmission Date: 20110219
  Serious: No
  Sender: FDA-Public Use
  Company Number: US-PFIZER INC-2007071847

PATIENT
  Sex: Male
  Weight: 115.7 kg

DRUGS (2)
  1. LYRICA [Suspect]
     Indication: COMPLEX REGIONAL PAIN SYNDROME
     Dates: start: 20070727, end: 20070803
  2. TOPROL-XL [Concomitant]

REACTIONS (7)
  - DECREASED APPETITE [None]
  - EUPHORIC MOOD [None]
  - FEELING ABNORMAL [None]
  - FEELING DRUNK [None]
  - MALAISE [None]
  - MENTAL STATUS CHANGES [None]
  - VISION BLURRED [None]
